FAERS Safety Report 12711272 (Version 3)
Quarter: 2016Q3

REPORT INFORMATION
  Report Type: Spontaneous
  Country: IT (occurrence: IT)
  Receive Date: 20160902
  Receipt Date: 20160919
  Transmission Date: 20161109
  Serious: Yes (Other)
  Sender: FDA-Public Use
  Company Number: IT-ACCORD-043599

PATIENT
  Age: 87 Year
  Sex: Male

DRUGS (6)
  1. FOLINA [Concomitant]
     Active Substance: FOLIC ACID
     Dosage: STRENGTH: 5 MG, SOFT CAPSULES
  2. TIKLID [Concomitant]
     Active Substance: TICLOPIDINE HYDROCHLORIDE
     Dosage: STRENGTH: 250 MG
  3. LEVETIRACETAM. [Suspect]
     Active Substance: LEVETIRACETAM
     Indication: PETIT MAL EPILEPSY
     Route: 048
     Dates: start: 20160715, end: 20160730
  4. ESOMEPRAZOLE [Concomitant]
     Active Substance: ESOMEPRAZOLE
  5. DEURSIL [Concomitant]
     Active Substance: URSODIOL
     Dosage: STRENGTH: 300 MG
  6. TARCEVA [Concomitant]
     Active Substance: ERLOTINIB HYDROCHLORIDE
     Dosage: STRENGTH: 100 MG

REACTIONS (3)
  - Irritability [Recovering/Resolving]
  - Somnolence [Recovering/Resolving]
  - Product substitution issue [Recovering/Resolving]

NARRATIVE: CASE EVENT DATE: 20160715
